FAERS Safety Report 20807135 (Version 1)
Quarter: 2022Q2

REPORT INFORMATION
  Report Type: Spontaneous
  Country: CA (occurrence: CA)
  Receive Date: 20220510
  Receipt Date: 20220510
  Transmission Date: 20220721
  Serious: Yes (Other)
  Sender: FDA-Public Use
  Company Number: CA-SPECGX-T202200755

PATIENT
  Sex: Male

DRUGS (7)
  1. METHADOSE [Suspect]
     Active Substance: METHADONE HYDROCHLORIDE
     Indication: Product used for unknown indication
     Dosage: UNK
     Route: 065
  2. OXYCODONE HYDROCHLORIDE [Suspect]
     Active Substance: OXYCODONE HYDROCHLORIDE
     Indication: Limb injury
     Dosage: UNK
     Route: 065
  3. OXYCODONE HYDROCHLORIDE [Suspect]
     Active Substance: OXYCODONE HYDROCHLORIDE
     Indication: Joint injury
     Dosage: 10 MILLIGRAM, Q8H
     Route: 048
  4. OXYCONTIN [Suspect]
     Active Substance: OXYCODONE HYDROCHLORIDE
     Indication: Limb injury
     Dosage: 20 MILLIGRAM, Q8H
     Route: 048
  5. OXYCONTIN [Suspect]
     Active Substance: OXYCODONE HYDROCHLORIDE
     Indication: Joint injury
  6. OXYCONTIN [Suspect]
     Active Substance: OXYCODONE HYDROCHLORIDE
     Indication: Limb injury
     Dosage: 80 MILLIGRAM, Q8H
     Route: 048
  7. OXYCONTIN [Suspect]
     Active Substance: OXYCODONE HYDROCHLORIDE
     Indication: Joint injury

REACTIONS (20)
  - Suicidal ideation [Unknown]
  - Drug dependence [Unknown]
  - Anger [Unknown]
  - Bone pain [Unknown]
  - Cold sweat [Unknown]
  - Grief reaction [Unknown]
  - Hot flush [Unknown]
  - Mood swings [Unknown]
  - Phobia [Unknown]
  - Sleep disorder [Unknown]
  - Somnolence [Unknown]
  - Weight increased [Unknown]
  - Anxiety [Unknown]
  - Constipation [Unknown]
  - Depression [Unknown]
  - Dizziness [Unknown]
  - Nausea [Unknown]
  - Rash pruritic [Unknown]
  - Tremor [Unknown]
  - Drug withdrawal syndrome [Unknown]
